FAERS Safety Report 15893196 (Version 1)
Quarter: 2019Q1

REPORT INFORMATION
  Report Type: Report from Study
  Country: US (occurrence: US)
  Receive Date: 20190130
  Receipt Date: 20190130
  Transmission Date: 20190417
  Serious: No
  Sender: FDA-Public Use
  Company Number: US-EXELIXIS-CABO-18016366

PATIENT
  Sex: Female

DRUGS (3)
  1. COMETRIQ [Suspect]
     Active Substance: CABOZANTINIB S-MALATE
     Indication: PERITONEAL MESOTHELIOMA MALIGNANT
     Dosage: 60 MG, QD
     Route: 048
     Dates: start: 20160712, end: 201609
  2. COMETRIQ [Suspect]
     Active Substance: CABOZANTINIB S-MALATE
     Dosage: 40 MG, QD
     Route: 048
     Dates: start: 201711, end: 201810
  3. LEVOTHYROXINE. [Concomitant]
     Active Substance: LEVOTHYROXINE

REACTIONS (2)
  - Malignant neoplasm progression [Unknown]
  - Off label use [Unknown]
